FAERS Safety Report 12075064 (Version 2)
Quarter: 2016Q1

REPORT INFORMATION
  Report Type: Spontaneous
  Country: CA (occurrence: CA)
  Receive Date: 20160212
  Receipt Date: 20160225
  Transmission Date: 20160526
  Serious: Yes (Disabling)
  Sender: FDA-Public Use
  Company Number: CA-ACTELION-A-NJ2016-131104

PATIENT
  Age: 65 Year
  Sex: Male

DRUGS (4)
  1. ZAVESCA [Suspect]
     Active Substance: MIGLUSTAT
     Dosage: 100MG AM, 100MG PM, 200MG HS
     Route: 048
     Dates: start: 201512
  2. ZAVESCA [Suspect]
     Active Substance: MIGLUSTAT
     Dosage: 100 MG, TID
     Route: 048
     Dates: start: 20160202
  3. ZAVESCA [Suspect]
     Active Substance: MIGLUSTAT
     Indication: NIEMANN-PICK DISEASE
     Dosage: 100 MG, QD
     Route: 048
     Dates: start: 20150303
  4. ZAVESCA [Suspect]
     Active Substance: MIGLUSTAT
     Dosage: 200 MG, TID
     Route: 048
     Dates: start: 201509, end: 201512

REACTIONS (7)
  - Disease progression [Not Recovered/Not Resolved]
  - Asthenia [Not Recovered/Not Resolved]
  - Dysmetria [Not Recovered/Not Resolved]
  - Fall [Not Recovered/Not Resolved]
  - Somnolence [Not Recovered/Not Resolved]
  - Lethargy [Not Recovered/Not Resolved]
  - Fatigue [Not Recovered/Not Resolved]

NARRATIVE: CASE EVENT DATE: 201503
